FAERS Safety Report 24291639 (Version 1)
Quarter: 2024Q3

REPORT INFORMATION
  Report Type: Spontaneous
  Country: US (occurrence: None)
  Receive Date: 20240906
  Receipt Date: 20240906
  Transmission Date: 20241017
  Serious: No
  Sender: DOMPE FARMACEUTICI
  Company Number: US-FARMAPROD-202310-2942

PATIENT
  Sex: Female

DRUGS (18)
  1. OXERVATE [Suspect]
     Active Substance: CENEGERMIN-BKBJ
     Indication: Neurotrophic keratopathy
     Route: 047
     Dates: start: 20230829
  2. OXERVATE [Suspect]
     Active Substance: CENEGERMIN-BKBJ
  3. OXERVATE [Suspect]
     Active Substance: CENEGERMIN-BKBJ
  4. ALPHA LIPOIC ACID [Concomitant]
     Active Substance: .ALPHA.-LIPOIC ACID
  5. BUPRENORPHINE [Concomitant]
     Active Substance: BUPRENORPHINE
  6. LORATADINE [Concomitant]
     Active Substance: LORATADINE
  7. METHENAMINE HIPPURATE [Concomitant]
     Active Substance: METHENAMINE HIPPURATE
  8. FENOFIBRATE [Concomitant]
     Active Substance: FENOFIBRATE
  9. DIGOXIN [Concomitant]
     Active Substance: DIGOXIN
  10. PANTOPRAZOLE SODIUM [Concomitant]
     Active Substance: PANTOPRAZOLE SODIUM
  11. GABAPENTIN [Concomitant]
     Active Substance: GABAPENTIN
  12. OXYCODONE AND ACETAMINOPHEN [Concomitant]
     Active Substance: ACETAMINOPHEN\OXYCODONE HYDROCHLORIDE
  13. LIDOCAINE [Concomitant]
     Active Substance: LIDOCAINE
  14. COMBIGAN [Concomitant]
     Active Substance: BRIMONIDINE TARTRATE\TIMOLOL MALEATE
     Dosage: 0.2%-0.5%
  15. LUMIGAN [Concomitant]
     Active Substance: BIMATOPROST
  16. RESTASIS [Concomitant]
     Active Substance: CYCLOSPORINE
  17. ELIQUIS [Concomitant]
     Active Substance: APIXABAN
  18. ATORVASTATIN CALCIUM [Concomitant]
     Active Substance: ATORVASTATIN CALCIUM

REACTIONS (5)
  - Product use complaint [Unknown]
  - Infection [Unknown]
  - Intentional product misuse [Unknown]
  - Vision blurred [Unknown]
  - Illness [Unknown]
